FAERS Safety Report 7212992-6 (Version None)
Quarter: 2011Q1

REPORT INFORMATION
  Report Type: 
  Country: None (occurrence: None)
  Receive Date: 20110106
  Receipt Date: 20110103
  Transmission Date: 20110831
  Serious: Yes (Hospitalization)
  Sender: FDA-Public Use
  Company Number: A0902924A

PATIENT
  Age: 39 Year
  Sex: Male

DRUGS (8)
  1. RADIATION [Suspect]
  2. AVASTIN [Suspect]
     Indication: GLIOBLASTOMA
     Route: 042
     Dates: start: 20100915
  3. DECADRON [Concomitant]
     Dosage: 2MG PER DAY
     Route: 048
  4. PEPCID [Concomitant]
     Dosage: 40MG AT NIGHT
     Route: 048
  5. TOPOTECAN [Suspect]
     Indication: GLIOBLASTOMA
     Route: 048
     Dates: start: 20101130
  6. TEMODAR [Suspect]
     Indication: GLIOBLASTOMA
     Route: 048
     Dates: start: 20100915
  7. KEPPRA [Concomitant]
     Dosage: 500MG TWICE PER DAY
     Route: 048
  8. ZOFRAN [Concomitant]
     Dosage: 4MG AS REQUIRED

REACTIONS (5)
  - INFECTION [None]
  - NAUSEA [None]
  - BODY TEMPERATURE INCREASED [None]
  - GASTROENTERITIS VIRAL [None]
  - VOMITING [None]
